FAERS Safety Report 7015084-4 (Version None)
Quarter: 2010Q3

REPORT INFORMATION
  Report Type: 
  Country: None (occurrence: None)
  Receive Date: 20100927
  Receipt Date: 20100922
  Transmission Date: 20110219
  Serious: Yes (Hospitalization)
  Sender: FDA-Public Use
  Company Number: JP-ABBOTT-10P-087-0655255-00

PATIENT
  Sex: Male

DRUGS (11)
  1. HUMIRA [Suspect]
     Indication: RHEUMATOID ARTHRITIS
     Route: 058
     Dates: start: 20091118, end: 20100224
  2. METHOTREXATE [Concomitant]
     Indication: RHEUMATOID ARTHRITIS
     Dates: end: 20100315
  3. TACROLIMUS [Concomitant]
     Indication: RHEUMATOID ARTHRITIS
     Dates: end: 20100315
  4. PREDNISOLONE [Concomitant]
     Indication: RHEUMATOID ARTHRITIS
     Route: 048
  5. FOLIC ACID [Concomitant]
     Indication: ADVERSE DRUG REACTION
     Dates: end: 20100315
  6. FOLIC ACID [Concomitant]
     Indication: PROPHYLAXIS
  7. FAMOTIDINE [Concomitant]
     Indication: GASTROINTESTINAL DISORDER
  8. FAMOTIDINE [Concomitant]
     Indication: PROPHYLAXIS
  9. ALENDRONATE SODIUM HYDRATE [Concomitant]
     Indication: OSTEOPOROSIS PROPHYLAXIS
     Dates: end: 20100315
  10. CELECOXIB [Concomitant]
     Indication: RHEUMATOID ARTHRITIS
     Dosage: FORM STRENGTH:  200 MG
     Dates: start: 20091215
  11. CELECOXIB [Concomitant]
     Route: 048
     Dates: end: 20091215

REACTIONS (1)
  - CEREBELLAR INFARCTION [None]
